FAERS Safety Report 9439829 (Version 1)
Quarter: 2013Q3

REPORT INFORMATION
  Report Type: Spontaneous
  Country: US (occurrence: US)
  Receive Date: 20130805
  Receipt Date: 20130805
  Transmission Date: 20140515
  Serious: No
  Sender: FDA-Public Use
  Company Number: US-PFIZER INC-2013224341

PATIENT
  Age: 75 Year
  Sex: Female

DRUGS (7)
  1. XELJANZ [Suspect]
     Indication: RHEUMATOID ARTHRITIS
     Dosage: 5 MG, 2X/DAY
     Route: 048
  2. PLAQUENIL [Concomitant]
     Dosage: 200 MG, UNK
  3. RAMIPRIL [Concomitant]
     Dosage: 10 MG, UNK
  4. SIMVASTATIN [Concomitant]
     Dosage: 40 MG, UNK
  5. METOPROLOL ER [Concomitant]
     Dosage: 100 MG, UNK
  6. LOSARTAN POT [Concomitant]
     Dosage: 100 MG, UNK
  7. HYDROCHLOROT [Concomitant]
     Dosage: 12.5 MG, UNK

REACTIONS (1)
  - Drug ineffective [Unknown]
